FAERS Safety Report 6203627-X (Version None)
Quarter: 2009Q2

REPORT INFORMATION
  Report Type: 
  Country: None (occurrence: None)
  Receive Date: 20090518
  Receipt Date: 20090219
  Transmission Date: 20091009
  Serious: No
  Sender: FDA-Public Use
  Company Number: WAES 0902USA03582

PATIENT
  Age: 79 Year
  Sex: Female

DRUGS (1)
  1. JANUVIA [Suspect]
     Indication: TYPE 2 DIABETES MELLITUS
     Dosage: 100 MG/DAILY/PO
     Route: 048
     Dates: start: 20081201, end: 20090129

REACTIONS (5)
  - FEELING ABNORMAL [None]
  - POOR QUALITY SLEEP [None]
  - PRURITUS [None]
  - RASH [None]
  - WEIGHT DECREASED [None]
